APPROVED DRUG PRODUCT: CORTRIL
Active Ingredient: HYDROCORTISONE
Strength: 2.5%
Dosage Form/Route: OINTMENT;TOPICAL
Application: N009176 | Product #002
Applicant: PFIZER GLOBAL RESEARCH DEVELOPMENT
Approved: Approved Prior to Jan 1, 1982 | RLD: No | RS: No | Type: DISCN